FAERS Safety Report 6834172-6 (Version None)
Quarter: 2010Q3

REPORT INFORMATION
  Report Type: 
  Country: None (occurrence: None)
  Receive Date: 20100712
  Receipt Date: 20070613
  Transmission Date: 20110219
  Serious: No
  Sender: FDA-Public Use
  Company Number: US-PFIZER INC-2007031581

PATIENT
  Sex: Female
  Weight: 63.1 kg

DRUGS (6)
  1. CHANTIX [Suspect]
     Indication: SMOKING CESSATION THERAPY
     Dates: start: 20070401
  2. CHANTIX [Interacting]
     Indication: TOBACCO ABUSE
  3. PERCOCET [Interacting]
     Indication: NEUROPATHY PERIPHERAL
  4. LEXAPRO [Concomitant]
  5. ATIVAN [Concomitant]
  6. ANASTROZOLE [Concomitant]

REACTIONS (6)
  - DRUG INEFFECTIVE [None]
  - DRUG INTERACTION [None]
  - HEADACHE [None]
  - NAUSEA [None]
  - TOBACCO USER [None]
  - VOMITING [None]
